FAERS Safety Report 5901777-6 (Version None)
Quarter: 2008Q3

REPORT INFORMATION
  Report Type: 
  Country: None (occurrence: None)
  Receive Date: 20080926
  Receipt Date: 20080926
  Transmission Date: 20090109
  Serious: Yes (Other)
  Sender: FDA-Public Use
  Company Number: None

PATIENT
  Sex: Male
  Weight: 11 kg

DRUGS (1)
  1. ACETAMINOPHEN [Suspect]
     Indication: FEBRILE CONVULSION
     Dosage: PO
     Route: 048
     Dates: start: 20080903, end: 20080903

REACTIONS (2)
  - ANAPHYLACTIC REACTION [None]
  - ANGIOEDEMA [None]
